FAERS Safety Report 5229276-8 (Version None)
Quarter: 2007Q1

REPORT INFORMATION
  Report Type: 
  Country: None (occurrence: None)
  Receive Date: 20061201
  Receipt Date: 20060803
  Transmission Date: 20070707
  Serious: No
  Sender: FDA-Public Use
  Company Number: US200608001800

PATIENT
  Age: 32 Year
  Sex: Male

DRUGS (1)
  1. CYMBALTA [Suspect]
     Dosage: 30 MG
     Dates: start: 20060601

REACTIONS (2)
  - CHEST PAIN [None]
  - PALPITATIONS [None]
